FAERS Safety Report 9287622 (Version 1)
Quarter: 2013Q2

REPORT INFORMATION
  Report Type: Spontaneous
  Country: PL (occurrence: PL)
  Receive Date: 20130514
  Receipt Date: 20130514
  Transmission Date: 20140414
  Serious: Yes (Hospitalization, Other)
  Sender: FDA-Public Use
  Company Number: PL-ROCHE-1210031

PATIENT
  Age: 42 Year
  Sex: Male
  Weight: 73 kg

DRUGS (5)
  1. PEGASYS [Suspect]
     Indication: HEPATITIS C
     Route: 058
     Dates: start: 20050708, end: 20051015
  2. COPEGUS [Suspect]
     Indication: HEPATITIS C
     Route: 048
     Dates: start: 20050708, end: 20051010
  3. VITAMIN E [Concomitant]
     Route: 048
     Dates: start: 20050710, end: 20051015
  4. VITAMIN C [Concomitant]
     Route: 048
     Dates: start: 20050710, end: 20051015
  5. CLARITIN [Concomitant]
     Indication: URTICARIA
     Route: 048
     Dates: start: 20050710, end: 20051015

REACTIONS (5)
  - Thrombocytopenia [Recovered/Resolved]
  - Leukopenia [Recovered/Resolved]
  - Aplasia pure red cell [Unknown]
  - Anaemia [Recovered/Resolved]
  - Urticaria [Unknown]
